FAERS Safety Report 23987258 (Version 1)
Quarter: 2024Q2

REPORT INFORMATION
  Report Type: Spontaneous
  Country: US (occurrence: US)
  Receive Date: 20240618
  Receipt Date: 20240618
  Transmission Date: 20240716
  Serious: No
  Sender: FDA-Public Use
  Company Number: US-SANOFI-02088117

PATIENT
  Age: 55 Year
  Sex: Female

DRUGS (2)
  1. TOUJEO [Suspect]
     Active Substance: INSULIN GLARGINE
     Indication: Type 1 diabetes mellitus
     Dosage: (18-20 UNITS HS AND DRUG TREATMENT DURATION:2 WEEKS), QD
     Route: 065
  2. HUMALOG [Concomitant]
     Active Substance: INSULIN LISPRO

REACTIONS (3)
  - Malaise [Unknown]
  - Blood glucose increased [Unknown]
  - Glycosylated haemoglobin decreased [Unknown]
